FAERS Safety Report 13003337 (Version 1)
Quarter: 2016Q4

REPORT INFORMATION
  Report Type: Spontaneous
  Country: FR (occurrence: FR)
  Receive Date: 20161206
  Receipt Date: 20161206
  Transmission Date: 20170207
  Serious: Yes (Other)
  Sender: FDA-Public Use
  Company Number: FR-MYLANLABS-2016M1052998

PATIENT

DRUGS (1)
  1. LORAZEPAM MYLAN [Suspect]
     Active Substance: LORAZEPAM
     Indication: SOMNOLENCE
     Dosage: UNK

REACTIONS (3)
  - Fall [Unknown]
  - Petit mal epilepsy [Unknown]
  - Pain [Unknown]

NARRATIVE: CASE EVENT DATE: 20160924
